FAERS Safety Report 7651265-4 (Version None)
Quarter: 2011Q3

REPORT INFORMATION
  Report Type: 
  Country: None (occurrence: None)
  Receive Date: 20110727
  Receipt Date: 20110713
  Transmission Date: 20111222
  Serious: Yes (Life-Threatening)
  Sender: FDA-Public Use
  Company Number: 1000022266

PATIENT
  Age: 69 Year
  Sex: Male
  Weight: 82 kg

DRUGS (7)
  1. CARDIOMAGNYL (ACETYLSALICYLIC ACID, MAGNESIUM HYDROXIDE) [Concomitant]
  2. TIVORTIN 9ARGININE) [Concomitant]
  3. MEMANTINE HYDROCHLORIDE [Suspect]
     Indication: DEMENTIA
     Dosage: 5 MG, ORAL
     Route: 048
     Dates: start: 20110525, end: 20110525
  4. VABADIN (SIMVASTATIN) [Concomitant]
  5. BISOPROLOL FUMARATE [Concomitant]
  6. VITOPRIL (LISINOPRIL) [Concomitant]
  7. ESSENTIALE (ESSENTIAL PHOSPHOLIPIDS) [Concomitant]

REACTIONS (6)
  - SELF-INJURIOUS IDEATION [None]
  - SUICIDAL IDEATION [None]
  - NEGATIVISM [None]
  - VIOLENCE-RELATED SYMPTOM [None]
  - AGITATION [None]
  - AGGRESSION [None]
